FAERS Safety Report 6906421-7 (Version None)
Quarter: 2010Q3

REPORT INFORMATION
  Report Type: 
  Country: None (occurrence: None)
  Receive Date: 20100804
  Receipt Date: 20100729
  Transmission Date: 20110219
  Serious: Yes (Life-Threatening)
  Sender: FDA-Public Use
  Company Number: B0650701A

PATIENT
  Sex: Male

DRUGS (18)
  1. ATRACURIUM [Suspect]
     Indication: SEDATION
     Route: 042
     Dates: start: 20100201, end: 20100207
  2. NIMBEX [Suspect]
     Indication: SEDATION
     Route: 042
     Dates: start: 20100119, end: 20100201
  3. VFEND [Suspect]
     Dosage: 320MG TWICE PER DAY
     Route: 042
     Dates: start: 20100122, end: 20100203
  4. HYPNOVEL [Suspect]
     Indication: SEDATION
     Route: 042
     Dates: start: 20100119
  5. SUFENTANIL [Suspect]
     Indication: SEDATION
     Route: 042
     Dates: start: 20100119, end: 20100124
  6. PROPOFOL [Suspect]
     Indication: SEDATION
     Route: 042
     Dates: start: 20100124, end: 20100202
  7. PANCURONIUM BROMURE [Suspect]
     Indication: SEDATION
     Route: 042
     Dates: start: 20100201, end: 20100202
  8. FLAGYL [Suspect]
     Indication: PRODUCT USED FOR UNKNOWN INDICATION
     Route: 042
     Dates: start: 20100125, end: 20100219
  9. ROCEPHIN [Suspect]
     Indication: PRODUCT USED FOR UNKNOWN INDICATION
     Dosage: 1G PER DAY
     Route: 042
     Dates: start: 20100119, end: 20100227
  10. KETAMINE [Concomitant]
     Indication: SEDATION
     Dosage: 15MGH CONTINUOUS
     Route: 065
     Dates: start: 20100202, end: 20100207
  11. METHYLPREDNISOLONE [Concomitant]
     Indication: SEDATION
     Route: 042
     Dates: start: 20100125, end: 20100207
  12. HYDROCORTISONE [Concomitant]
     Indication: SEDATION
     Dosage: 50MG FOUR TIMES PER DAY
     Route: 065
     Dates: start: 20100208
  13. BRICANYL [Concomitant]
     Indication: PRODUCT USED FOR UNKNOWN INDICATION
     Route: 042
  14. AMBISOME [Concomitant]
     Route: 065
     Dates: start: 20100203
  15. LOVENOX [Concomitant]
     Route: 065
     Dates: end: 20100203
  16. CALCIPARINE [Concomitant]
     Route: 065
     Dates: start: 20100203
  17. HUMALOG [Concomitant]
     Route: 065
     Dates: start: 20100101, end: 20100101
  18. OLICLINOMEL [Concomitant]
     Dosage: 1500ML PER DAY
     Route: 065
     Dates: start: 20100123, end: 20100208

REACTIONS (6)
  - ANURIA [None]
  - NEUROMYOPATHY [None]
  - OLIGURIA [None]
  - PROPOFOL INFUSION SYNDROME [None]
  - RENAL FAILURE ACUTE [None]
  - RHABDOMYOLYSIS [None]
